FAERS Safety Report 11230580 (Version 1)
Quarter: 2015Q2

REPORT INFORMATION
  Report Type: Spontaneous
  Country: None (occurrence: None)
  Receive Date: 20150630
  Receipt Date: 20150630
  Transmission Date: 20150821
  Serious: Yes (Other)
  Sender: FDA-Public Use
  Company Number: None

PATIENT
  Age: 51 Year
  Sex: Female
  Weight: 102.06 kg

DRUGS (1)
  1. ZYRTEC [Suspect]
     Active Substance: CETIRIZINE HYDROCHLORIDE
     Indication: MULTIPLE ALLERGIES
     Route: 048

REACTIONS (7)
  - Pruritus [None]
  - Fatigue [None]
  - Vomiting [None]
  - Insomnia [None]
  - Diarrhoea [None]
  - Nausea [None]
  - Product label issue [None]

NARRATIVE: CASE EVENT DATE: 20150622
